FAERS Safety Report 15681803 (Version 2)
Quarter: 2018Q4

REPORT INFORMATION
  Report Type: Spontaneous
  Country: US (occurrence: US)
  Receive Date: 20181203
  Receipt Date: 20181231
  Transmission Date: 20190205
  Serious: Yes (Other)
  Sender: FDA-Public Use
  Company Number: US-AKORN PHARMACEUTICALS-2018AKN01868

PATIENT
  Age: 24 Year
  Sex: Female
  Weight: 91.9 kg

DRUGS (4)
  1. MYORISAN [Suspect]
     Active Substance: ISOTRETINOIN
     Indication: ACNE
     Dosage: UNK MG, 1X/DAY
     Route: 048
     Dates: start: 20181018, end: 20181105
  2. ELDERBERRY SUPPLEMENT [Concomitant]
  3. ADRENAL RX [Concomitant]
  4. WOMEN^S ONE-A-DAY MULTIVITAMIN [Concomitant]
     Active Substance: VITAMINS

REACTIONS (4)
  - Depressed mood [Not Recovered/Not Resolved]
  - Off label use [Recovered/Resolved]
  - Migraine [Recovered/Resolved]
  - Back pain [Recovered/Resolved]

NARRATIVE: CASE EVENT DATE: 2018
